FAERS Safety Report 15716899 (Version 1)
Quarter: 2018Q4

REPORT INFORMATION
  Report Type: Spontaneous
  Country: US (occurrence: US)
  Receive Date: 20181213
  Receipt Date: 20181213
  Transmission Date: 20190205
  Serious: Yes (Disabling)
  Sender: FDA-Public Use
  Company Number: None

PATIENT
  Age: 66 Year
  Sex: Male
  Weight: 76.5 kg

DRUGS (8)
  1. BREO ELLIPTA [Suspect]
     Active Substance: FLUTICASONE FUROATE\VILANTEROL TRIFENATATE
     Indication: DYSPNOEA
     Dosage: ?          QUANTITY:30 INHALATION(S);?
     Route: 055
  2. CHOLESTEROL MEDS [Concomitant]
  3. POTASSIUM [Concomitant]
     Active Substance: POTASSIUM
  4. DIURETIC [Concomitant]
     Active Substance: UNSPECIFIED INGREDIENT
  5. VITAMINS FOR EYES [Concomitant]
  6. BREO ELLIPTA [Suspect]
     Active Substance: FLUTICASONE FUROATE\VILANTEROL TRIFENATATE
     Indication: WHEEZING
     Dosage: ?          QUANTITY:30 INHALATION(S);?
     Route: 055
  7. HPM [Concomitant]
  8. ASPIRIN. [Concomitant]
     Active Substance: ASPIRIN

REACTIONS (4)
  - Dysphonia [None]
  - Tooth fracture [None]
  - Dental caries [None]
  - Tooth discolouration [None]

NARRATIVE: CASE EVENT DATE: 20181213
